FAERS Safety Report 7093963-X (Version None)
Quarter: 2010Q4

REPORT INFORMATION
  Report Type: 
  Country: None (occurrence: None)
  Receive Date: 20101110
  Receipt Date: 20101101
  Transmission Date: 20110411
  Serious: Yes (Hospitalization)
  Sender: FDA-Public Use
  Company Number: US-ASTRAZENECA-2010SE52044

PATIENT
  Age: 55 Year
  Sex: Male
  Weight: 113.4 kg

DRUGS (4)
  1. SEROQUEL [Suspect]
     Route: 048
     Dates: start: 20060101
  2. GLUCOPHAGE [Concomitant]
  3. PRANDIN [Concomitant]
  4. LONG ACTING INSULIN [Concomitant]

REACTIONS (4)
  - DIZZINESS [None]
  - FULL BLOOD COUNT DECREASED [None]
  - MELAENA [None]
  - PANCREATITIS [None]
